FAERS Safety Report 9183701 (Version 1)
Quarter: 2013Q1

REPORT INFORMATION
  Report Type: Spontaneous
  Country: US (occurrence: US)
  Receive Date: 20130322
  Receipt Date: 20130322
  Transmission Date: 20140127
  Serious: No
  Sender: FDA-Public Use
  Company Number: US-BRISTOL-MYERS SQUIBB COMPANY-16587115

PATIENT
  Age: 44 Year
  Sex: Male
  Weight: 82.54 kg

DRUGS (3)
  1. ERBITUX [Suspect]
     Indication: LARYNGEAL CANCER
     Dosage: RESTARTED ON 11MAY2012.
     Dates: start: 2012
  2. ERBITUX [Suspect]
     Indication: LYMPHOMA
     Dosage: RESTARTED ON 11MAY2012.
     Dates: start: 2012
  3. ERBITUX [Suspect]
     Indication: THROAT CANCER
     Dosage: RESTARTED ON 11MAY2012.
     Dates: start: 2012

REACTIONS (1)
  - Rash [Not Recovered/Not Resolved]
